FAERS Safety Report 8773640 (Version 1)
Quarter: 2012Q4

REPORT INFORMATION
  Report Type: 
  Country: SE (occurrence: SE)
  Receive Date: 20120907
  Receipt Date: 20120907
  Transmission Date: 20130627
  Serious: Yes (Other)
  Sender: FDA-Public Use
  Company Number: PHHY2012SE077393

PATIENT
  Sex: Male

DRUGS (3)
  1. TRILEPTAL [Suspect]
     Indication: AFFECTIVE DISORDER
     Dosage: 2 DF, Daily
     Route: 048
     Dates: start: 2000
  2. TRILEPTAL [Suspect]
     Dosage: 0.5 DF (Half tablet), Daily
     Route: 048
  3. TRILEPTAL [Suspect]
     Dosage: 2 DF (1DF at morning, 1DF at evening)
     Route: 048

REACTIONS (7)
  - Catatonia [Unknown]
  - Foreign body sensation in eyes [Recovered/Resolved]
  - Excessive eye blinking [Recovered/Resolved]
  - Strabismus [Recovered/Resolved]
  - Vision blurred [Recovered/Resolved]
  - Drug ineffective [Unknown]
  - Incorrect dose administered [Unknown]
